FAERS Safety Report 8762128 (Version 2)
Quarter: 2012Q4

REPORT INFORMATION
  Report Type: 
  Country: US (occurrence: US)
  Receive Date: 20120830
  Receipt Date: 20120907
  Transmission Date: 20130627
  Serious: Yes (Other)
  Sender: FDA-Public Use
  Company Number: US-ACTELION-A-NJ2012-69878

PATIENT
  Age: 67 Year
  Sex: Female

DRUGS (5)
  1. VENTAVIS [Suspect]
     Indication: PULMONARY ARTERIAL HYPERTENSION
     Dosage: UNK
     Route: 055
     Dates: start: 20120806, end: 20120806
  2. VENTAVIS [Suspect]
     Dosage: 2.5 mcg, 5-6 times daily
     Route: 055
     Dates: start: 20120807, end: 201208
  3. SILDENAFIL [Concomitant]
  4. LASIX [Concomitant]
  5. SPIRONOLACTONE [Concomitant]

REACTIONS (19)
  - Upper respiratory tract infection [Recovering/Resolving]
  - Nausea [Recovering/Resolving]
  - Cough [Recovering/Resolving]
  - Chills [Recovering/Resolving]
  - Sputum discoloured [Recovering/Resolving]
  - Pulmonary congestion [Recovering/Resolving]
  - Body temperature increased [Recovering/Resolving]
  - Malaise [Recovering/Resolving]
  - Blood pressure decreased [Recovering/Resolving]
  - Lymphadenopathy [Recovering/Resolving]
  - Discomfort [Recovering/Resolving]
  - Nasopharyngitis [Unknown]
  - Chest discomfort [Unknown]
  - Headache [Unknown]
  - Dyspnoea [Recovered/Resolved]
  - Dizziness [Unknown]
  - Fatigue [Unknown]
  - Hypersensitivity [Unknown]
  - Flushing [Unknown]
